FAERS Safety Report 6580005-5 (Version None)
Quarter: 2010Q1

REPORT INFORMATION
  Report Type: 
  Country: None (occurrence: None)
  Receive Date: 20100203
  Receipt Date: 20100118
  Transmission Date: 20100710
  Serious: Yes (Other)
  Sender: FDA-Public Use
  Company Number: B0629351A

PATIENT
  Sex: Female

DRUGS (1)
  1. PAROXETINE HCL [Suspect]

REACTIONS (14)
  - ACTIVITIES OF DAILY LIVING IMPAIRED [None]
  - ANDROGEN DEFICIENCY [None]
  - CLITORAL ENGORGEMENT [None]
  - DISCOMFORT [None]
  - DYSTONIA [None]
  - DYSURIA [None]
  - FEELING ABNORMAL [None]
  - FEMALE SEXUAL DYSFUNCTION [None]
  - NOCTURIA [None]
  - PAIN [None]
  - PARAESTHESIA [None]
  - POLLAKIURIA [None]
  - RESIDUAL URINE [None]
  - SUICIDAL IDEATION [None]
